FAERS Safety Report 5887115-6 (Version None)
Quarter: 2008Q3

REPORT INFORMATION
  Report Type: 
  Country: None (occurrence: None)
  Receive Date: 20080917
  Receipt Date: 20080908
  Transmission Date: 20090109
  Serious: Yes (Life-Threatening, Hospitalization)
  Sender: FDA-Public Use
  Company Number: JP-PFIZER INC-2008074968

PATIENT
  Age: 71 Year
  Sex: Male

DRUGS (3)
  1. NORVASC [Suspect]
     Dosage: DAILY DOSE:2.5MG-FREQ:FREQUENCY: 1 IN 1 D
     Route: 048
  2. OLMETEC [Suspect]
     Indication: ESSENTIAL HYPERTENSION
     Dosage: DAILY DOSE:20MG-FREQ:FREQUENCY: 1 IN 1 D
     Route: 048
     Dates: start: 20060404
  3. ALLOPURINOL [Suspect]
     Dosage: DAILY DOSE:100MG-FREQ:FREQUENCY: 1 IN 1 D
     Route: 048

REACTIONS (1)
  - SARCOMA [None]
